FAERS Safety Report 5923508-6 (Version None)
Quarter: 2008Q4

REPORT INFORMATION
  Report Type: 
  Country: None (occurrence: None)
  Receive Date: 20081015
  Receipt Date: 20081002
  Transmission Date: 20090506
  Serious: Yes (Hospitalization)
  Sender: FDA-Public Use
  Company Number: 2008BI026260

PATIENT
  Age: 60 Year
  Sex: Female
  Weight: 68.4932 kg

DRUGS (10)
  1. TYSABRI [Suspect]
     Indication: MULTIPLE SCLEROSIS
     Dosage: 300 MG; QM; IV
     Route: 042
     Dates: start: 20071018
  2. PROVIGIL [Concomitant]
  3. SINGULAIR [Concomitant]
  4. LYRICA [Concomitant]
  5. THEOPHYLLINE-SR [Concomitant]
  6. BONIVA [Concomitant]
  7. PRILOSEC [Concomitant]
  8. CALCIUM AND VITAMIN D [Concomitant]
  9. MULTI-VITAMIN [Concomitant]
  10. SYSTEMIC CORTICOSTEROIDS [Concomitant]

REACTIONS (4)
  - CHRONIC OBSTRUCTIVE PULMONARY DISEASE [None]
  - CONDITION AGGRAVATED [None]
  - SINUSITIS [None]
  - TREATMENT FAILURE [None]
